FAERS Safety Report 10176072 (Version 1)
Quarter: 2014Q2

REPORT INFORMATION
  Report Type: Spontaneous
  Country: US (occurrence: None)
  Receive Date: 20140515
  Receipt Date: 20140515
  Transmission Date: 20141212
  Serious: No
  Sender: FDA-Public Use
  Company Number: None

PATIENT
  Age: 65 Year
  Sex: Female

DRUGS (1)
  1. HUMIRA [Suspect]
     Indication: ARTHRITIS
     Dosage: HUMIRA PEN 40MG 40MG EVERY OTHER WEEK SUBCUTANEOUSLY
     Route: 058
     Dates: start: 20140415

REACTIONS (1)
  - Psoriasis [None]
